FAERS Safety Report 7832977 (Version 2)
Quarter: 2015Q3

REPORT INFORMATION
  Report Type: Spontaneous
  Country: US (occurrence: US)
  Receive Date: 20110228
  Receipt Date: 20150909
  Transmission Date: 20151125
  Serious: Yes (Other)
  Sender: FDA-Public Use
  Company Number: US-ROCHE-734330

PATIENT
  Age: 17 Year
  Sex: Male
  Weight: 72.6 kg

DRUGS (2)
  1. ACCUTANE [Suspect]
     Active Substance: ISOTRETINOIN
     Indication: ACNE
     Route: 065
     Dates: start: 1997, end: 1998
  2. ACCUTANE [Suspect]
     Active Substance: ISOTRETINOIN
     Route: 065
     Dates: start: 19990101, end: 19991231

REACTIONS (8)
  - Gastrointestinal injury [Unknown]
  - Suicidal ideation [Unknown]
  - Haemorrhoids [Unknown]
  - Inflammatory bowel disease [Unknown]
  - Bipolar disorder [Unknown]
  - Anal fissure [Unknown]
  - Colitis ulcerative [Unknown]
  - Depression [Unknown]

NARRATIVE: CASE EVENT DATE: 200402
